FAERS Safety Report 5404611-6 (Version None)
Quarter: 2007Q3

REPORT INFORMATION
  Report Type: 
  Country: None (occurrence: None)
  Receive Date: 20070713
  Receipt Date: 20070430
  Transmission Date: 20080115
  Serious: Yes (Hospitalization)
  Sender: FDA-Public Use
  Company Number: US-JNJFOC-20060305074

PATIENT
  Age: 25 Year
  Sex: Female
  Weight: 97.5234 kg

DRUGS (1)
  1. ORTHO EVRA [Suspect]
     Indication: DRUG USE FOR UNKNOWN INDICATION
     Dosage: 1 DOSE(S),  1 IN 3 WEEK
     Dates: start: 20020912, end: 20021129

REACTIONS (1)
  - PULMONARY EMBOLISM [None]
